FAERS Safety Report 9604002 (Version 3)
Quarter: 2013Q4

REPORT INFORMATION
  Report Type: Spontaneous
  Country: US (occurrence: US)
  Receive Date: 20131008
  Receipt Date: 20131114
  Transmission Date: 20140711
  Serious: No
  Sender: FDA-Public Use
  Company Number: US-BIOGENIDEC-2013BI095877

PATIENT
  Age: 60 Year
  Sex: Male

DRUGS (12)
  1. TYSABRI [Suspect]
     Indication: MULTIPLE SCLEROSIS
     Route: 042
     Dates: start: 20090612, end: 20130828
  2. FLUOXETINE [Concomitant]
  3. LISINOPRIL/HCTZ [Concomitant]
  4. POTASSIUM [Concomitant]
  5. OXYBUTYNINE [Concomitant]
  6. LEVOTHYROXINE [Concomitant]
  7. GABAPENTIN [Concomitant]
  8. CALCIUM CARBONATE [Concomitant]
  9. VITAMIN D [Concomitant]
  10. FISH OIL [Concomitant]
  11. MULTIVITAMIN [Concomitant]
  12. ASPIRIN [Concomitant]

REACTIONS (6)
  - Erythema [Recovered/Resolved]
  - Swelling face [Recovered/Resolved]
  - Lip swelling [Recovered/Resolved]
  - Nonspecific reaction [Recovered/Resolved]
  - Hypersensitivity [Recovered/Resolved]
  - Drug specific antibody present [Unknown]
